FAERS Safety Report 7623923-9 (Version None)
Quarter: 2011Q3

REPORT INFORMATION
  Report Type: 
  Country: None (occurrence: None)
  Receive Date: 20110712
  Receipt Date: 20110628
  Transmission Date: 20111222
  Serious: No
  Sender: FDA-Public Use
  Company Number: 11-356

PATIENT
  Sex: Female

DRUGS (1)
  1. MIDOL [Suspect]
     Dosage: ORAL
     Route: 048

REACTIONS (2)
  - ABASIA [None]
  - DIZZINESS [None]
